FAERS Safety Report 21313736 (Version 1)
Quarter: 2022Q3

REPORT INFORMATION
  Report Type: Spontaneous
  Country: US (occurrence: US)
  Receive Date: 20220909
  Receipt Date: 20220909
  Transmission Date: 20221027
  Serious: No
  Sender: FDA-Public Use
  Company Number: US-LEADIANT BIOSCIENCES INC-2021STPI000344

PATIENT
  Sex: Female

DRUGS (1)
  1. MATULANE [Suspect]
     Active Substance: PROCARBAZINE HYDROCHLORIDE
     Indication: Brain neoplasm
     Dosage: 50 MILLIGRAM, TAKE 2 CAPSULES (100 MG TOTAL) DAILY ON DAYS 8-21 OF EVERY 42 DAYS
     Route: 048
     Dates: start: 20210722, end: 20211130

REACTIONS (2)
  - Nausea [Unknown]
  - Vomiting [Unknown]
